FAERS Safety Report 25993637 (Version 1)
Quarter: 2025Q4

REPORT INFORMATION
  Report Type: Spontaneous
  Country: EU (occurrence: EU)
  Receive Date: 20251104
  Receipt Date: 20251104
  Transmission Date: 20260118
  Serious: Yes (Death, Other)
  Sender: ROCHE
  Company Number: EU-ROCHE-10000418547

PATIENT

DRUGS (3)
  1. GLOFITAMAB [Suspect]
     Active Substance: GLOFITAMAB
     Indication: Product used for unknown indication
     Route: 065
     Dates: start: 20250423
  2. TOCILIZUMAB [Suspect]
     Active Substance: TOCILIZUMAB
     Indication: Product used for unknown indication
     Route: 065
  3. HUMAN RED BLOOD CELL [Concomitant]
     Active Substance: HUMAN RED BLOOD CELL
     Indication: Anaemia
     Dates: start: 20250505

REACTIONS (9)
  - Neutropenic sepsis [Fatal]
  - Hypotension [Unknown]
  - Cytokine release syndrome [Unknown]
  - Atrial fibrillation [Unknown]
  - Troponin increased [Unknown]
  - Sinusitis [Unknown]
  - Expired product administered [Unknown]
  - Product storage error [Unknown]
  - Ventricular tachycardia [Unknown]

NARRATIVE: CASE EVENT DATE: 20250423
